FAERS Safety Report 5591036-6 (Version None)
Quarter: 2008Q1

REPORT INFORMATION
  Report Type: 
  Country: None (occurrence: None)
  Receive Date: 20080115
  Receipt Date: 20080107
  Transmission Date: 20080703
  Serious: Yes (Other)
  Sender: FDA-Public Use
  Company Number: US-JNJFOC-20060906332

PATIENT
  Sex: Male
  Weight: 77.57 kg

DRUGS (5)
  1. RISPERDAL [Suspect]
     Indication: TIC
  2. SEROQUEL [Suspect]
     Indication: DRUG USE FOR UNKNOWN INDICATION
  3. TOPROL-XL [Concomitant]
  4. KLONOPIN [Concomitant]
  5. NITRO-DUR [Concomitant]

REACTIONS (1)
  - DIABETES MELLITUS [None]
